FAERS Safety Report 4551038-5 (Version None)
Quarter: 2005Q1

REPORT INFORMATION
  Report Type: 
  Country: None (occurrence: None)
  Receive Date: 20050113
  Receipt Date: 20040630
  Transmission Date: 20050727
  Serious: No
  Sender: FDA-Public Use
  Company Number: US-BRISTOL-MYERS SQUIBB COMPANY-12628566

PATIENT
  Age: 32 Year
  Sex: Female

DRUGS (3)
  1. DESYREL [Suspect]
     Indication: DEPRESSION
     Dosage: DURATION OF THERAPY:  SEVERAL YEARS
     Route: 048
  2. PAXIL [Concomitant]
     Dosage: DURATION OF THERAPY:  SEVERAL YEARS
     Route: 048
  3. PROZAC [Concomitant]
     Dosage: DURATION OF THERAPY:  SEVERAL YEARS
     Route: 048

REACTIONS (1)
  - PREGNANCY [None]
